FAERS Safety Report 5504561-0 (Version None)
Quarter: 2007Q4

REPORT INFORMATION
  Report Type: 
  Country: None (occurrence: None)
  Receive Date: 20071031
  Receipt Date: 20071025
  Transmission Date: 20080405
  Serious: Yes (Death)
  Sender: FDA-Public Use
  Company Number: 2007SP020884

PATIENT
  Age: 52 Year
  Sex: Male

DRUGS (1)
  1. TEMODAL [Suspect]
     Indication: BRAIN NEOPLASM MALIGNANT
     Dosage: PO
     Route: 048

REACTIONS (2)
  - PNEUMONIA [None]
  - PULMONARY EMBOLISM [None]
